FAERS Safety Report 8339083-5 (Version None)
Quarter: 2012Q2

REPORT INFORMATION
  Report Type: 
  Country: None (occurrence: None)
  Receive Date: 20120502
  Receipt Date: 20120418
  Transmission Date: 20120825
  Serious: Yes (Other)
  Sender: FDA-Public Use
  Company Number: AUR-APL-2012-01838

PATIENT
  Age: 61 Year
  Sex: Male
  Weight: 84 kg

DRUGS (8)
  1. NAPROXEN [Concomitant]
  2. PIROXICAM [Concomitant]
  3. RAMIPRIL [Suspect]
     Indication: PRODUCT USED FOR UNKNOWN INDICATION
     Dates: start: 20120319
  4. CO -DYDRAMOL ( PARAMOL -11 8 ) [Concomitant]
  5. FELODIPINE [Concomitant]
  6. SIMVASTATIN [Concomitant]
  7. VENTOLIN [Concomitant]
  8. SALMETEROL ( SALMETEROL ) [Concomitant]

REACTIONS (2)
  - SUICIDAL IDEATION [None]
  - DEPRESSION [None]
